FAERS Safety Report 8379807-4 (Version None)
Quarter: 2012Q1

REPORT INFORMATION
  Report Type: 
  Country: None (occurrence: None)
  Receive Date: 20120323
  Receipt Date: 20110817
  Transmission Date: 20120608
  Serious: Yes (Hospitalization)
  Sender: FDA-Public Use
  Company Number: 163-21880-11041778

PATIENT
  Age: 49 Year
  Sex: Male

DRUGS (3)
  1. DECADRON [Suspect]
     Indication: MULTIPLE MYELOMA
     Dosage: 20 MG, DAYS 1-2, 4-5, 8-9 11-12 EVERY 21 DAYS
     Dates: start: 20110307
  2. REVLIMID [Suspect]
     Indication: MULTIPLE MYELOMA
     Dosage: 25 MG, 1 IN 1 D, PO
     Route: 048
     Dates: start: 20100501, end: 20100101
  3. VELCADE [Suspect]
     Indication: MULTIPLE MYELOMA
     Dosage: 2.9 MG, DAYS 1, 4, 8, 11 EVERY 21 DAYS
     Dates: start: 20110307

REACTIONS (1)
  - PNEUMONIA [None]
